FAERS Safety Report 7514908-1 (Version None)
Quarter: 2011Q2

REPORT INFORMATION
  Report Type: 
  Country: None (occurrence: None)
  Receive Date: 20110601
  Receipt Date: 20110518
  Transmission Date: 20111010
  Serious: Yes (Hospitalization, Other)
  Sender: FDA-Public Use
  Company Number: DE-MYLANLABS-2011S1010354

PATIENT
  Sex: Female

DRUGS (5)
  1. AZATHIOPRINE [Suspect]
     Indication: CROHN'S DISEASE
     Dosage: 150 [MG/D ]
     Route: 048
  2. PENTASA [Suspect]
     Indication: CROHN'S DISEASE
     Dosage: 100 [MG/D ]
     Route: 048
  3. FOLIC ACID [Concomitant]
     Indication: PROPHYLAXIS OF NEURAL TUBE DEFECT
     Route: 048
  4. PREDNISOLONE [Suspect]
     Indication: CROHN'S DISEASE
     Dosage: 70 [MG/D ]/ GW: 0-8: 70MG/D, GW: 8-11: REDUCED TO 5MG/D
     Route: 048
  5. PREDNISOLONE [Suspect]
     Route: 048

REACTIONS (2)
  - ABORTION SPONTANEOUS [None]
  - DRUG EXPOSURE DURING PREGNANCY [None]
